FAERS Safety Report 7851433-2 (Version None)
Quarter: 2011Q4

REPORT INFORMATION
  Report Type: 
  Country: None (occurrence: None)
  Receive Date: 20111026
  Receipt Date: 20111020
  Transmission Date: 20120403
  Serious: Yes (Hospitalization, Other)
  Sender: FDA-Public Use
  Company Number: US-AMGEN-USASP2011054408

PATIENT
  Age: 76 Year
  Sex: Male
  Weight: 83.5 kg

DRUGS (6)
  1. INSULIN [Concomitant]
  2. DEMEROL [Concomitant]
     Indication: PREMEDICATION
  3. NPLATE [Suspect]
     Indication: IDIOPATHIC THROMBOCYTOPENIC PURPURA
     Dates: start: 20110803
  4. ZANTAC [Concomitant]
     Indication: PREMEDICATION
  5. BENADRYL [Concomitant]
  6. SOLUCORT [Concomitant]
     Indication: PREMEDICATION

REACTIONS (4)
  - TACHYCARDIA [None]
  - CHILLS [None]
  - PYREXIA [None]
  - DRUG HYPERSENSITIVITY [None]
